FAERS Safety Report 9531775 (Version 1)
Quarter: 2013Q3

REPORT INFORMATION
  Report Type: Spontaneous
  Country: AU (occurrence: None)
  Receive Date: 20130916
  Receipt Date: 20130916
  Transmission Date: 20140515
  Serious: Yes (Other)
  Sender: FDA-Public Use
  Company Number: 2013P1019197

PATIENT
  Age: 17 Month
  Sex: Male

DRUGS (3)
  1. RIFAMPIN [Suspect]
     Indication: MYCOBACTERIUM ULCERANS INFECTION
  2. RIFAMPIN [Suspect]
  3. CLARITHROMYCIN [Suspect]
     Indication: MYCOBACTERIUM ULCERANS INFECTION

REACTIONS (4)
  - Treatment failure [None]
  - Paradoxical drug reaction [None]
  - Mycobacterium ulcerans infection [None]
  - Disease recurrence [None]
